FAERS Safety Report 7886818-1 (Version None)
Quarter: 2011Q4

REPORT INFORMATION
  Report Type: 
  Country: None (occurrence: None)
  Receive Date: 20111102
  Receipt Date: 20110711
  Transmission Date: 20120403
  Serious: No
  Sender: FDA-Public Use
  Company Number: US-AMGEN-USASP2011035268

PATIENT
  Age: 60 Year

DRUGS (2)
  1. HUMIRA [Suspect]
     Indication: RHEUMATOID ARTHRITIS
     Dosage: 40 MG, UNK
     Route: 058
     Dates: start: 20110301
  2. ENBREL [Suspect]
     Indication: RHEUMATOID ARTHRITIS
     Dosage: UNK

REACTIONS (1)
  - INJECTION SITE PAIN [None]
